FAERS Safety Report 10801020 (Version 2)
Quarter: 2015Q1

REPORT INFORMATION
  Report Type: Spontaneous
  Country: US (occurrence: US)
  Receive Date: 20150216
  Receipt Date: 20150216
  Transmission Date: 20150721
  Serious: No
  Sender: FDA-Public Use
  Company Number: US-ALLERGAN-1421433US

PATIENT
  Sex: Male

DRUGS (1)
  1. RESTASIS [Suspect]
     Active Substance: CYCLOSPORINE
     Indication: PRODUCT USED FOR UNKNOWN INDICATION
     Dosage: 1 GTT, TID
     Route: 047
     Dates: start: 201408

REACTIONS (3)
  - Inappropriate schedule of drug administration [Unknown]
  - Therapeutic response decreased [Unknown]
  - Eyelid oedema [Unknown]
